FAERS Safety Report 25442312 (Version 2)
Quarter: 2025Q3

REPORT INFORMATION
  Report Type: Spontaneous
  Country: US (occurrence: US)
  Receive Date: 20250616
  Receipt Date: 20250816
  Transmission Date: 20251021
  Serious: No
  Sender: ALEXION PHARMACEUTICALS
  Company Number: US-AstraZeneca-CH-00890004A

PATIENT
  Sex: Male

DRUGS (1)
  1. BREZTRI [Suspect]
     Active Substance: BUDESONIDE\FORMOTEROL\GLYCOPYRROLATE
     Route: 065

REACTIONS (7)
  - Tremor [Not Recovered/Not Resolved]
  - Stress [Unknown]
  - Dyspnoea [Unknown]
  - Dizziness [Unknown]
  - Abdominal discomfort [Unknown]
  - Hypotension [Unknown]
  - Inability to afford medication [Unknown]
